FAERS Safety Report 13286175 (Version 3)
Quarter: 2017Q1

REPORT INFORMATION
  Report Type: Report from Study
  Country: US (occurrence: US)
  Receive Date: 20170301
  Receipt Date: 20170330
  Transmission Date: 20170428
  Serious: Yes (Hospitalization)
  Sender: FDA-Public Use
  Company Number: US-ACTELION-A-US2016-143068

PATIENT
  Age: 63 Year
  Sex: Male
  Weight: 83.9 kg

DRUGS (6)
  1. OXYGEN. [Concomitant]
     Active Substance: OXYGEN
  2. OPSUMIT [Suspect]
     Active Substance: MACITENTAN
     Indication: PULMONARY ARTERIAL HYPERTENSION
     Route: 048
  3. VELETRI [Suspect]
     Active Substance: EPOPROSTENOL
     Indication: PULMONARY ARTERIAL HYPERTENSION
     Dosage: 13.2 NG/KG, PER MIN
     Route: 042
     Dates: start: 20160921, end: 201703
  4. VELETRI [Suspect]
     Active Substance: EPOPROSTENOL
     Dosage: 8 NG/KG, PER MIN
     Route: 042
     Dates: start: 20160921
  5. ADCIRCA [Concomitant]
     Active Substance: TADALAFIL
  6. REMODULIN [Concomitant]
     Active Substance: TREPROSTINIL

REACTIONS (22)
  - Lung transplant [Unknown]
  - Pain in jaw [Unknown]
  - Oxygen supplementation [Unknown]
  - Tremor [Unknown]
  - Oedema [Unknown]
  - Rash [Unknown]
  - Insomnia [Unknown]
  - First bite syndrome [Unknown]
  - Influenza like illness [Unknown]
  - Pain in jaw [Unknown]
  - Flushing [Unknown]
  - Rosacea [Unknown]
  - Dyspnoea [Recovering/Resolving]
  - Hypoxia [Unknown]
  - Back pain [Unknown]
  - Weight decreased [Unknown]
  - Transplant evaluation [Unknown]
  - Renal pain [Unknown]
  - Nasopharyngitis [Unknown]
  - Headache [Unknown]
  - Chills [Unknown]
  - Pain [Unknown]

NARRATIVE: CASE EVENT DATE: 20160921
